FAERS Safety Report 8675639 (Version 3)
Quarter: 2013Q4

REPORT INFORMATION
  Report Type: Spontaneous
  Country: SE (occurrence: SE)
  Receive Date: 20120720
  Receipt Date: 20131031
  Transmission Date: 20140711
  Serious: Yes (Hospitalization)
  Sender: FDA-Public Use
  Company Number: SE-009507513-1207SWE001759

PATIENT
  Age: 80 Year
  Sex: Female

DRUGS (4)
  1. ASMANEX TWISTHALER [Suspect]
     Dosage: 200 MICROGRAM, BID
  2. OXIS [Concomitant]
     Dosage: UNK, BID
  3. LEVAXIN [Concomitant]
     Dosage: UNK, QD
  4. BEHEPAN [Concomitant]
     Dosage: UNK, QD

REACTIONS (2)
  - Pneumonia [Recovering/Resolving]
  - Underdose [Unknown]
